FAERS Safety Report 6306777-2 (Version None)
Quarter: 2009Q3

REPORT INFORMATION
  Report Type: 
  Country: None (occurrence: None)
  Receive Date: 20090811
  Receipt Date: 20090811
  Transmission Date: 20100115
  Serious: No
  Sender: FDA-Public Use
  Company Number: None

PATIENT
  Age: 65 Year
  Sex: Male
  Weight: 87.0906 kg

DRUGS (1)
  1. JANUVIA [Suspect]
     Indication: TYPE 2 DIABETES MELLITUS
     Dosage: 1 1 PER DAY PO
     Route: 048
     Dates: start: 20090727, end: 20090807

REACTIONS (2)
  - BLOOD GLUCOSE DECREASED [None]
  - SKIN BURNING SENSATION [None]
